FAERS Safety Report 11730600 (Version 1)
Quarter: 2015Q4

REPORT INFORMATION
  Report Type: Spontaneous
  Country: US (occurrence: None)
  Receive Date: 20151112
  Receipt Date: 20151112
  Transmission Date: 20160304
  Serious: Yes (Other)
  Sender: FDA-Public Use
  Company Number: None

PATIENT
  Age: 37 Year
  Sex: Male
  Weight: 68.04 kg

DRUGS (9)
  1. OLANZAPINE. [Concomitant]
     Active Substance: OLANZAPINE
  2. IBUPROFEN. [Concomitant]
     Active Substance: IBUPROFEN
  3. TRAZODONE [Concomitant]
     Active Substance: TRAZODONE HYDROCHLORIDE
  4. PROPRANOLOL [Concomitant]
     Active Substance: PROPRANOLOL\PROPRANOLOL HYDROCHLORIDE
  5. BENZTROPINE [Concomitant]
     Active Substance: BENZTROPINE
  6. SYMBICORT [Concomitant]
     Active Substance: BUDESONIDE\FORMOTEROL FUMARATE DIHYDRATE
  7. PROVENTIL [Concomitant]
     Active Substance: ALBUTEROL
  8. SKELAXIN [Suspect]
     Active Substance: METAXALONE
     Indication: MUSCLE SPASMS
     Dosage: 1 PILL 3X TIMES DAILY
     Route: 048
     Dates: start: 20150815, end: 20151024
  9. NASONEX [Concomitant]
     Active Substance: MOMETASONE FUROATE

REACTIONS (15)
  - Condition aggravated [None]
  - Nausea [None]
  - Ocular icterus [None]
  - Heart rate increased [None]
  - Abdominal discomfort [None]
  - Pyrexia [None]
  - Seizure [None]
  - Psychotic disorder [None]
  - Dry mouth [None]
  - Headache [None]
  - Dizziness [None]
  - Somnolence [None]
  - Constipation [None]
  - Vision blurred [None]
  - Mood altered [None]

NARRATIVE: CASE EVENT DATE: 20151023
